FAERS Safety Report 4273136-6 (Version None)
Quarter: 2004Q1

REPORT INFORMATION
  Report Type: 
  Country: None (occurrence: None)
  Receive Date: 20040116
  Receipt Date: 20040106
  Transmission Date: 20041129
  Serious: Yes (Other)
  Sender: FDA-Public Use
  Company Number: GB-GLAXOSMITHKLINE-B0319037A

PATIENT
  Age: 28 Year
  Sex: Female

DRUGS (1)
  1. SEROXAT [Suspect]
     Route: 048

REACTIONS (1)
  - DIABETES INSIPIDUS [None]
